FAERS Safety Report 8850711 (Version 1)
Quarter: 2012Q4

REPORT INFORMATION
  Report Type: 
  Country: BR (occurrence: BR)
  Receive Date: 20121019
  Receipt Date: 20121019
  Transmission Date: 20130627
  Serious: Yes (Other)
  Sender: FDA-Public Use
  Company Number: PHHY2012BR093620

PATIENT
  Sex: Female

DRUGS (2)
  1. DIOVAN [Suspect]
     Indication: BLOOD PRESSURE
     Dosage: 80 mg, QD
  2. ANCORAN [Concomitant]
     Indication: ANGINA PECTORIS
     Dosage: UNK UKN, QD

REACTIONS (2)
  - Asthma [Not Recovered/Not Resolved]
  - Cardiovascular disorder [Not Recovered/Not Resolved]
